FAERS Safety Report 23302360 (Version 2)
Quarter: 2024Q1

REPORT INFORMATION
  Report Type: Other
  Country: CA (occurrence: CA)
  Receive Date: 20231215
  Receipt Date: 20240213
  Transmission Date: 20240410
  Serious: Yes (Life-Threatening, Hospitalization, Other)
  Sender: FDA-Public Use
  Company Number: CA-APOTEX-2023AP017707

PATIENT
  Age: 77 Year
  Sex: Female

DRUGS (259)
  1. ACEBUTOLOL [Interacting]
     Active Substance: ACEBUTOLOL
     Indication: Hypertension
     Dosage: 400 MILLIGRAM, BID
     Route: 065
  2. ACEBUTOLOL [Interacting]
     Active Substance: ACEBUTOLOL
     Indication: Coronary artery disease
     Dosage: 100 MILLIGRAM
     Route: 065
  3. ACEBUTOLOL [Interacting]
     Active Substance: ACEBUTOLOL
     Indication: Constipation
     Dosage: 200 MILLIGRAM, BID
     Route: 065
  4. ACEBUTOLOL [Interacting]
     Active Substance: ACEBUTOLOL
     Indication: Angina pectoris
     Dosage: 400 MILLIGRAM, QD
     Route: 065
  5. ACEBUTOLOL [Interacting]
     Active Substance: ACEBUTOLOL
     Dosage: 400 MILLIGRAM, Q.WK.
     Route: 065
  6. ACEBUTOLOL [Interacting]
     Active Substance: ACEBUTOLOL
     Dosage: 200 MILLIGRAM, QD
     Route: 065
  7. ACETAMINOPHEN [Interacting]
     Active Substance: ACETAMINOPHEN
     Indication: Radioactive iodine therapy
     Dosage: UNK
     Route: 065
  8. ACETAMINOPHEN [Interacting]
     Active Substance: ACETAMINOPHEN
     Indication: Pain
  9. ACETAMINOPHEN [Interacting]
     Active Substance: ACETAMINOPHEN
     Indication: Angina pectoris
  10. ACETAMINOPHEN [Interacting]
     Active Substance: ACETAMINOPHEN
     Indication: Fibromyalgia
  11. ACETAMINOPHEN\CAFFEINE [Interacting]
     Active Substance: ACETAMINOPHEN\CAFFEINE
     Indication: Radioactive iodine therapy
     Dosage: 50 MILLIGRAM, QD
     Route: 065
  12. ACETAMINOPHEN\CAFFEINE [Interacting]
     Active Substance: ACETAMINOPHEN\CAFFEINE
     Indication: Hypertension
     Dosage: 60 MILLIGRAM, QD
     Route: 065
  13. ACETAMINOPHEN\CAFFEINE [Interacting]
     Active Substance: ACETAMINOPHEN\CAFFEINE
     Indication: Coronary artery disease
     Dosage: 650 MILLIGRAM, QD
     Route: 065
  14. ACETAMINOPHEN\CAFFEINE [Interacting]
     Active Substance: ACETAMINOPHEN\CAFFEINE
     Indication: Angina pectoris
     Dosage: 650 MILLIGRAM
     Route: 065
  15. ACETAMINOPHEN\CAFFEINE [Interacting]
     Active Substance: ACETAMINOPHEN\CAFFEINE
     Indication: Cerebrovascular accident
  16. ACETAMINOPHEN\CAFFEINE [Interacting]
     Active Substance: ACETAMINOPHEN\CAFFEINE
     Indication: Pain
  17. ACETAMINOPHEN\CAFFEINE [Interacting]
     Active Substance: ACETAMINOPHEN\CAFFEINE
     Indication: Chronic obstructive pulmonary disease
  18. ACETAMINOPHEN\CAFFEINE [Interacting]
     Active Substance: ACETAMINOPHEN\CAFFEINE
     Indication: Fibromyalgia
  19. AMITRIPTYLINE HYDROCHLORIDE [Interacting]
     Active Substance: AMITRIPTYLINE HYDROCHLORIDE
     Indication: Hypertension
     Dosage: UNK
     Route: 065
  20. AMITRIPTYLINE HYDROCHLORIDE [Interacting]
     Active Substance: AMITRIPTYLINE HYDROCHLORIDE
     Indication: Fibromyalgia
     Dosage: 75 MILLIGRAM
     Route: 065
  21. AMITRIPTYLINE HYDROCHLORIDE [Interacting]
     Active Substance: AMITRIPTYLINE HYDROCHLORIDE
     Indication: Dementia
     Dosage: UNK
     Route: 048
  22. AMITRIPTYLINE HYDROCHLORIDE [Interacting]
     Active Substance: AMITRIPTYLINE HYDROCHLORIDE
     Indication: Coronary artery disease
     Dosage: 50 MILLIGRAM
     Route: 048
  23. AMITRIPTYLINE HYDROCHLORIDE [Interacting]
     Active Substance: AMITRIPTYLINE HYDROCHLORIDE
     Indication: Arthritis
     Dosage: 50 MILLIGRAM, QD
     Route: 065
  24. AMITRIPTYLINE HYDROCHLORIDE [Interacting]
     Active Substance: AMITRIPTYLINE HYDROCHLORIDE
     Indication: Angina pectoris
     Dosage: 25 MILLIGRAM, QD
     Route: 065
  25. AMITRIPTYLINE HYDROCHLORIDE [Interacting]
     Active Substance: AMITRIPTYLINE HYDROCHLORIDE
     Indication: Thyroid disorder
     Dosage: 5 MILLIGRAM, QD
     Route: 065
  26. AMITRIPTYLINE HYDROCHLORIDE [Interacting]
     Active Substance: AMITRIPTYLINE HYDROCHLORIDE
     Indication: Radioactive iodine therapy
     Dosage: 75 MILLIGRAM, QD
     Route: 048
  27. AMITRIPTYLINE HYDROCHLORIDE [Interacting]
     Active Substance: AMITRIPTYLINE HYDROCHLORIDE
     Indication: Prophylaxis
  28. AMITRIPTYLINE HYDROCHLORIDE [Interacting]
     Active Substance: AMITRIPTYLINE HYDROCHLORIDE
     Indication: Pain
  29. AMITRIPTYLINE HYDROCHLORIDE [Interacting]
     Active Substance: AMITRIPTYLINE HYDROCHLORIDE
     Indication: Oedema
  30. AMITRIPTYLINE HYDROCHLORIDE [Interacting]
     Active Substance: AMITRIPTYLINE HYDROCHLORIDE
     Indication: Insomnia
  31. AMITRIPTYLINE HYDROCHLORIDE [Interacting]
     Active Substance: AMITRIPTYLINE HYDROCHLORIDE
     Indication: Duodenal ulcer
  32. AMITRIPTYLINE HYDROCHLORIDE [Interacting]
     Active Substance: AMITRIPTYLINE HYDROCHLORIDE
     Indication: Constipation
  33. AMLODIPINE [Suspect]
     Active Substance: AMLODIPINE BESYLATE
     Indication: Hypertension
     Dosage: 5 MILLIGRAM, QD
     Route: 065
  34. AMLODIPINE [Suspect]
     Active Substance: AMLODIPINE BESYLATE
     Indication: Coronary artery disease
     Dosage: 50 MILLIGRAM, QD
     Route: 065
  35. AMLODIPINE [Suspect]
     Active Substance: AMLODIPINE BESYLATE
     Indication: Constipation
     Dosage: 5 MILLIGRAM
     Route: 065
  36. AMLODIPINE [Suspect]
     Active Substance: AMLODIPINE BESYLATE
     Indication: Angina pectoris
     Dosage: UNK
     Route: 065
  37. CARBAMAZEPINE [Interacting]
     Active Substance: CARBAMAZEPINE
     Indication: Seizure prophylaxis
     Dosage: 100 MILLIGRAM
     Route: 065
  38. CARBAMAZEPINE [Interacting]
     Active Substance: CARBAMAZEPINE
     Indication: Seizure
     Dosage: 200 MILLIGRAM
     Route: 065
  39. CARBAMAZEPINE [Interacting]
     Active Substance: CARBAMAZEPINE
     Indication: Fibromyalgia
     Dosage: UNK
     Route: 065
  40. CARBAMAZEPINE [Interacting]
     Active Substance: CARBAMAZEPINE
     Indication: Bladder disorder
  41. CYCLOBENZAPRINE [Interacting]
     Active Substance: CYCLOBENZAPRINE
     Indication: Seizure prophylaxis
     Dosage: 5 MILLIGRAM
     Route: 065
  42. CYCLOBENZAPRINE [Interacting]
     Active Substance: CYCLOBENZAPRINE
     Indication: Pain
     Dosage: 100 MILLIGRAM
     Route: 065
  43. CYCLOBENZAPRINE [Interacting]
     Active Substance: CYCLOBENZAPRINE
     Indication: Fibromyalgia
     Dosage: 15 MILLIGRAM
     Route: 065
  44. CYCLOBENZAPRINE [Interacting]
     Active Substance: CYCLOBENZAPRINE
     Dosage: 2 MILLIGRAM, QD
     Route: 065
  45. CYCLOBENZAPRINE [Interacting]
     Active Substance: CYCLOBENZAPRINE
     Dosage: UNK
     Route: 065
  46. CYCLOBENZAPRINE [Interacting]
     Active Substance: CYCLOBENZAPRINE
     Dosage: 15 MILLIGRAM, TID
     Route: 065
  47. CYCLOBENZAPRINE [Interacting]
     Active Substance: CYCLOBENZAPRINE
     Dosage: 5 MILLIGRAM
     Route: 065
  48. CYCLOBENZAPRINE [Interacting]
     Active Substance: CYCLOBENZAPRINE
     Dosage: 2 MILLIGRAM
     Route: 065
  49. CYCLOBENZAPRINE [Interacting]
     Active Substance: CYCLOBENZAPRINE
     Dosage: 5 MILLIGRAM, TID
     Route: 065
  50. CYCLOBENZAPRINE [Interacting]
     Active Substance: CYCLOBENZAPRINE
     Dosage: UNK, QD
     Route: 065
  51. CYCLOBENZAPRINE [Interacting]
     Active Substance: CYCLOBENZAPRINE
     Dosage: UNK, TID
     Route: 065
  52. CYCLOBENZAPRINE [Interacting]
     Active Substance: CYCLOBENZAPRINE
     Dosage: 45 MILLIGRAM, QD
     Route: 065
  53. CYCLOBENZAPRINE [Interacting]
     Active Substance: CYCLOBENZAPRINE
     Dosage: 0.63 MILLIGRAM
     Route: 065
  54. CYCLOBENZAPRINE [Interacting]
     Active Substance: CYCLOBENZAPRINE
     Dosage: 15 MILLIGRAM, QD
     Route: 065
  55. CYCLOBENZAPRINE [Interacting]
     Active Substance: CYCLOBENZAPRINE
     Dosage: 1.87 MILLIGRAM
     Route: 065
  56. CYCLOBENZAPRINE [Interacting]
     Active Substance: CYCLOBENZAPRINE
     Dosage: 100 MILLIGRAM, QD
     Route: 065
  57. CYCLOBENZAPRINE [Interacting]
     Active Substance: CYCLOBENZAPRINE
     Dosage: 5.61 MILLIGRAM, QD
     Route: 065
  58. CYCLOBENZAPRINE [Interacting]
     Active Substance: CYCLOBENZAPRINE
     Dosage: 1.87 MILLIGRAM, QD
     Route: 065
  59. CYCLOBENZAPRINE [Interacting]
     Active Substance: CYCLOBENZAPRINE
     Dosage: 200 MILLIGRAM
     Route: 065
  60. CYCLOBENZAPRINE [Interacting]
     Active Substance: CYCLOBENZAPRINE
     Dosage: UNK
     Route: 058
  61. CYCLOBENZAPRINE [Interacting]
     Active Substance: CYCLOBENZAPRINE
     Dosage: UNK, BID
     Route: 065
  62. OXAZEPAM [Interacting]
     Active Substance: OXAZEPAM
     Indication: Insomnia
     Dosage: 15 MILLIGRAM, QD
     Route: 065
  63. OXAZEPAM [Interacting]
     Active Substance: OXAZEPAM
     Indication: Hypertension
     Dosage: UNK
     Route: 065
  64. OXAZEPAM [Interacting]
     Active Substance: OXAZEPAM
     Indication: Angina pectoris
     Dosage: UNK
     Route: 048
  65. OXAZEPAM [Interacting]
     Active Substance: OXAZEPAM
     Indication: Coronary artery disease
     Dosage: UNK, QD
     Route: 065
  66. OXAZEPAM [Interacting]
     Active Substance: OXAZEPAM
     Dosage: 40 MILLIGRAM, QD
     Route: 048
  67. OXAZEPAM [Interacting]
     Active Substance: OXAZEPAM
     Dosage: 20 MILLIGRAM, QD
     Route: 065
  68. OXAZEPAM [Interacting]
     Active Substance: OXAZEPAM
     Dosage: 40 MILLIGRAM, QD
     Route: 065
  69. OXAZEPAM [Interacting]
     Active Substance: OXAZEPAM
     Dosage: 15 MILLIGRAM
     Route: 065
  70. CALCIUM CARBONATE [Interacting]
     Active Substance: CALCIUM CARBONATE
     Indication: Product used for unknown indication
     Dosage: UNK
     Route: 065
  71. DILTIAZEM [Interacting]
     Active Substance: DILTIAZEM
     Indication: Hypertension
     Dosage: 360 MILLIGRAM, QD
     Route: 065
  72. DILTIAZEM [Interacting]
     Active Substance: DILTIAZEM
     Indication: Coronary artery disease
     Dosage: UNK
     Route: 065
  73. DILTIAZEM [Interacting]
     Active Substance: DILTIAZEM
     Indication: Chest pain
     Dosage: 300 MILLIGRAM, QD
     Route: 065
  74. DILTIAZEM [Interacting]
     Active Substance: DILTIAZEM
     Indication: Angina pectoris
     Dosage: 36 MILLIGRAM, QD
     Route: 065
  75. DILTIAZEM [Interacting]
     Active Substance: DILTIAZEM
     Indication: Angina unstable
     Dosage: 500 MILLIGRAM, QD
     Route: 065
  76. DILTIAZEM [Interacting]
     Active Substance: DILTIAZEM
     Dosage: 115 MILLIGRAM, QD
     Route: 065
  77. DILTIAZEM [Interacting]
     Active Substance: DILTIAZEM
     Dosage: 75 MILLIGRAM, QD
     Route: 065
  78. DILTIAZEM [Interacting]
     Active Substance: DILTIAZEM
     Dosage: 16 MILLIGRAM, QD
     Route: 065
  79. DILTIAZEM [Interacting]
     Active Substance: DILTIAZEM
     Dosage: 0.4 MILLIGRAM
     Route: 065
  80. DIPYRIDAMOLE [Interacting]
     Active Substance: DIPYRIDAMOLE
     Indication: Cerebrovascular accident
     Dosage: 2 DOSAGE FORM
     Route: 065
  81. DIPYRIDAMOLE [Interacting]
     Active Substance: DIPYRIDAMOLE
     Dosage: 2 DOSAGE FORM, QD
     Route: 065
  82. DIPYRIDAMOLE [Interacting]
     Active Substance: DIPYRIDAMOLE
     Dosage: 1 DOSAGE FORM
     Route: 065
  83. FUROSEMIDE [Interacting]
     Active Substance: FUROSEMIDE
     Indication: Oedema
     Dosage: 40 MILLIGRAM, QD
     Route: 065
  84. FUROSEMIDE [Interacting]
     Active Substance: FUROSEMIDE
     Indication: Coronary artery disease
     Dosage: 4 MILLIGRAM, QD
     Route: 065
  85. FUROSEMIDE [Interacting]
     Active Substance: FUROSEMIDE
     Indication: Chest pain
     Dosage: 20 MILLIGRAM, QD
     Route: 065
  86. GALANTAMINE [Interacting]
     Active Substance: GALANTAMINE
     Indication: Dementia
     Dosage: UNK
     Route: 065
  87. NITROGLYCERIN [Interacting]
     Active Substance: NITROGLYCERIN
     Indication: Coronary artery disease
     Dosage: 1 DOSAGE FORM, QD
     Route: 065
  88. NITROGLYCERIN [Interacting]
     Active Substance: NITROGLYCERIN
     Indication: Chest pain
     Dosage: 0.6 MILLIGRAM
     Route: 065
  89. NITROGLYCERIN [Interacting]
     Active Substance: NITROGLYCERIN
     Indication: Hypertension
     Dosage: UNK, QD
     Route: 065
  90. NITROGLYCERIN [Interacting]
     Active Substance: NITROGLYCERIN
     Indication: Angina pectoris
     Dosage: 20 MILLIGRAM
     Route: 065
  91. NITROGLYCERIN [Interacting]
     Active Substance: NITROGLYCERIN
     Dosage: 6 MILLIGRAM, QD
     Route: 065
  92. NITROGLYCERIN [Interacting]
     Active Substance: NITROGLYCERIN
     Dosage: 40 MILLIGRAM, QD
     Route: 065
  93. NITROGLYCERIN [Interacting]
     Active Substance: NITROGLYCERIN
     Dosage: 0.6 MILLIGRAM, Q.H.
     Route: 061
  94. NITROGLYCERIN [Interacting]
     Active Substance: NITROGLYCERIN
     Dosage: 0.6 MILLIGRAM, QD
     Route: 061
  95. NITROGLYCERIN [Interacting]
     Active Substance: NITROGLYCERIN
     Dosage: 0.4 MILLIGRAM
     Route: 065
  96. NITROGLYCERIN [Interacting]
     Active Substance: NITROGLYCERIN
     Dosage: UNK
     Route: 064
  97. LEVOFLOXACIN [Interacting]
     Active Substance: LEVOFLOXACIN
     Indication: Urinary tract infection
     Dosage: 250 MILLIGRAM
     Route: 065
  98. LEVOFLOXACIN [Interacting]
     Active Substance: LEVOFLOXACIN
     Indication: Thyroid disorder
     Dosage: 250 MILLIGRAM, QD
     Route: 065
  99. LEVOFLOXACIN [Interacting]
     Active Substance: LEVOFLOXACIN
     Indication: Radioactive iodine therapy
     Dosage: 15 MILLIGRAM
     Route: 065
  100. LEVOFLOXACIN [Interacting]
     Active Substance: LEVOFLOXACIN
     Dosage: 200 MILLIGRAM, QD
     Route: 065
  101. LEVOFLOXACIN [Interacting]
     Active Substance: LEVOFLOXACIN
     Dosage: 200 MILLIGRAM
     Route: 065
  102. LEVOTHYROXINE [Interacting]
     Active Substance: LEVOTHYROXINE\LEVOTHYROXINE SODIUM
     Indication: Thyroid disorder
     Dosage: UNK
     Route: 065
  103. LEVOTHYROXINE [Interacting]
     Active Substance: LEVOTHYROXINE\LEVOTHYROXINE SODIUM
     Indication: Urinary tract infection
     Dosage: 0.8 MILLIGRAM
     Route: 065
  104. LEVOTHYROXINE [Interacting]
     Active Substance: LEVOTHYROXINE\LEVOTHYROXINE SODIUM
     Indication: Radioactive iodine therapy
     Dosage: 88 MILLIGRAM, QD
     Route: 065
  105. LEVOTHYROXINE [Interacting]
     Active Substance: LEVOTHYROXINE\LEVOTHYROXINE SODIUM
     Indication: Constipation
     Dosage: 1244 MILLIGRAM, QD
     Route: 065
  106. LEVOTHYROXINE [Interacting]
     Active Substance: LEVOTHYROXINE\LEVOTHYROXINE SODIUM
     Dosage: 0.09 MILLIGRAM, QD
     Route: 065
  107. LEVOTHYROXINE [Interacting]
     Active Substance: LEVOTHYROXINE\LEVOTHYROXINE SODIUM
     Dosage: 0.09 MILLIGRAM, QD
     Route: 048
  108. LEVOTHYROXINE [Interacting]
     Active Substance: LEVOTHYROXINE\LEVOTHYROXINE SODIUM
     Dosage: 0.89 MILLIGRAM
     Route: 048
  109. LEVOTHYROXINE [Interacting]
     Active Substance: LEVOTHYROXINE\LEVOTHYROXINE SODIUM
     Dosage: 0.08 MILLIGRAM, QD
     Route: 065
  110. OMEPRAZOLE [Interacting]
     Active Substance: OMEPRAZOLE
     Indication: Small intestine carcinoma
     Dosage: 20 MILLIGRAM, QD
     Route: 065
  111. OMEPRAZOLE [Interacting]
     Active Substance: OMEPRAZOLE
     Indication: Duodenal ulcer
  112. OMEPRAZOLE [Interacting]
     Active Substance: OMEPRAZOLE
     Indication: Hypertension
  113. OMEPRAZOLE [Interacting]
     Active Substance: OMEPRAZOLE
     Indication: Angina pectoris
  114. OXCARBAZEPINE [Interacting]
     Active Substance: OXCARBAZEPINE
     Indication: Product used for unknown indication
     Dosage: UNK
     Route: 065
  115. QUINAPRIL [Interacting]
     Active Substance: QUINAPRIL
     Indication: Hypertension
     Dosage: 20 MILLIGRAM, QD
     Route: 065
  116. QUINAPRIL [Interacting]
     Active Substance: QUINAPRIL
     Indication: Coronary artery disease
     Dosage: 40 MILLIGRAM, QD
     Route: 065
  117. QUINAPRIL [Interacting]
     Active Substance: QUINAPRIL
     Indication: Seizure prophylaxis
     Dosage: 800 MILLIGRAM, QD
     Route: 065
  118. QUINAPRIL [Interacting]
     Active Substance: QUINAPRIL
     Indication: Pain
     Dosage: 200 MILLIGRAM, QD
     Route: 065
  119. QUINAPRIL [Interacting]
     Active Substance: QUINAPRIL
     Indication: Insomnia
     Dosage: 400 MILLIGRAM, QD
     Route: 065
  120. QUINAPRIL [Interacting]
     Active Substance: QUINAPRIL
     Indication: Chest pain
     Dosage: 40 MILLIGRAM, QD
     Route: 048
  121. QUINAPRIL [Interacting]
     Active Substance: QUINAPRIL
     Indication: Cerebrovascular accident
  122. QUINAPRIL [Interacting]
     Active Substance: QUINAPRIL
     Indication: Angina pectoris
  123. ROSUVASTATIN [Interacting]
     Active Substance: ROSUVASTATIN
     Indication: Chronic obstructive pulmonary disease
     Dosage: 20 MILLIGRAM
     Route: 048
  124. ROSUVASTATIN [Interacting]
     Active Substance: ROSUVASTATIN
     Indication: Chest pain
     Dosage: UNK
     Route: 065
  125. ROSUVASTATIN [Interacting]
     Active Substance: ROSUVASTATIN
     Indication: Cerebrovascular accident
     Dosage: UNK
     Route: 058
  126. ROSUVASTATIN [Interacting]
     Active Substance: ROSUVASTATIN
     Indication: Insomnia
     Dosage: 10 MILLIGRAM
     Route: 065
  127. ROSUVASTATIN [Interacting]
     Active Substance: ROSUVASTATIN
     Indication: Hypertension
     Dosage: 1.67 MILLIGRAM
     Route: 048
  128. ROSUVASTATIN [Interacting]
     Active Substance: ROSUVASTATIN
     Indication: Coronary artery disease
     Dosage: 400 MILLIGRAM
     Route: 048
  129. ROSUVASTATIN [Interacting]
     Active Substance: ROSUVASTATIN
     Dosage: 20 MILLIGRAM, QD
     Route: 048
  130. ROSUVASTATIN [Interacting]
     Active Substance: ROSUVASTATIN
     Dosage: 200 MILLIGRAM
     Route: 048
  131. ROSUVASTATIN [Interacting]
     Active Substance: ROSUVASTATIN
     Dosage: 30 MILLIGRAM, QD
     Route: 048
  132. ROSUVASTATIN [Interacting]
     Active Substance: ROSUVASTATIN
     Dosage: 40 MILLIGRAM, QD
     Route: 048
  133. ROSUVASTATIN [Interacting]
     Active Substance: ROSUVASTATIN
     Dosage: 20 MILLIGRAM, QD
     Route: 065
  134. ALBUTEROL [Interacting]
     Active Substance: ALBUTEROL
     Indication: Chest pain
     Dosage: 400 MILLIGRAM
     Route: 065
  135. ALBUTEROL [Interacting]
     Active Substance: ALBUTEROL
     Indication: Hypertension
     Dosage: UNK, QD
     Route: 065
  136. ALBUTEROL [Interacting]
     Active Substance: ALBUTEROL
     Indication: Coronary artery disease
  137. ALBUTEROL [Interacting]
     Active Substance: ALBUTEROL
     Indication: Chronic obstructive pulmonary disease
  138. ALBUTEROL [Interacting]
     Active Substance: ALBUTEROL
     Indication: Angina pectoris
  139. ASPIRIN [Interacting]
     Active Substance: ASPIRIN
     Indication: Hypertension
     Dosage: UNK
     Route: 065
  140. ASPIRIN [Interacting]
     Active Substance: ASPIRIN
     Indication: Coronary artery disease
     Dosage: UNK
     Route: 048
  141. ASPIRIN [Interacting]
     Active Substance: ASPIRIN
     Indication: Cerebrovascular accident
  142. ASPIRIN [Interacting]
     Active Substance: ASPIRIN
     Indication: Angina pectoris
  143. BISACODYL [Interacting]
     Active Substance: BISACODYL
     Indication: Constipation
     Dosage: UNK, QD
     Route: 065
  144. BISACODYL [Interacting]
     Active Substance: BISACODYL
     Indication: Chronic obstructive pulmonary disease
     Dosage: 2 DOSAGE FORM
     Route: 048
  145. BISACODYL [Interacting]
     Active Substance: BISACODYL
     Indication: Angina pectoris
     Dosage: UNK
     Route: 065
  146. BISACODYL [Interacting]
     Active Substance: BISACODYL
     Dosage: 1 DOSAGE FORM
     Route: 065
  147. DIAZEPAM [Interacting]
     Active Substance: DIAZEPAM
     Indication: Insomnia
     Dosage: UNK
     Route: 065
  148. DIAZEPAM [Interacting]
     Active Substance: DIAZEPAM
     Indication: Coronary artery disease
  149. DIAZEPAM [Interacting]
     Active Substance: DIAZEPAM
     Indication: Angina pectoris
  150. DOCUSATE SODIUM [Interacting]
     Active Substance: DOCUSATE SODIUM
     Indication: Constipation
     Dosage: UNK
     Route: 065
  151. ACETAMINOSALOL\ASPIRIN\CAFFEINE [Interacting]
     Active Substance: ACETAMINOSALOL\ASPIRIN\CAFFEINE
     Indication: Product used for unknown indication
     Dosage: UNK
     Route: 065
  152. AGGRENOX [Interacting]
     Active Substance: ASPIRIN\DIPYRIDAMOLE
     Indication: Cerebrovascular accident
     Dosage: 1 DOSAGE FORM, BID
     Route: 065
  153. AGGRENOX [Interacting]
     Active Substance: ASPIRIN\DIPYRIDAMOLE
     Indication: Hypertension
  154. AGGRENOX [Interacting]
     Active Substance: ASPIRIN\DIPYRIDAMOLE
     Indication: Arthritis
  155. GLUCOSAMINE [Interacting]
     Active Substance: GLUCOSAMINE
     Indication: Pain
     Dosage: UNK
     Route: 065
  156. GLUCOSAMINE [Interacting]
     Active Substance: GLUCOSAMINE
     Indication: Arthritis
     Dosage: 500 MILLIGRAM
     Route: 065
  157. GLUCOSAMINE [Interacting]
     Active Substance: GLUCOSAMINE
     Dosage: 2500 MILLIGRAM
     Route: 065
  158. GLUCOSAMINE [Interacting]
     Active Substance: GLUCOSAMINE
     Dosage: 1000 MILLIGRAM, QD
     Route: 065
  159. GLUCOSAMINE [Interacting]
     Active Substance: GLUCOSAMINE
     Dosage: 500 MILLIGRAM, BID
     Route: 065
  160. GLUCOSAMINE [Interacting]
     Active Substance: GLUCOSAMINE
     Dosage: 2500 MILLIGRAM, QD
     Route: 065
  161. GLUCOSAMINE [Interacting]
     Active Substance: GLUCOSAMINE
     Dosage: 250 MILLIGRAM, QD
     Route: 065
  162. GLYCERIN [Interacting]
     Active Substance: GLYCERIN
     Indication: Product used for unknown indication
     Dosage: UNK
     Route: 065
  163. LACTULOSE [Interacting]
     Active Substance: LACTULOSE
     Indication: Thyroid disorder
     Dosage: 15 MILLIGRAM, QD
     Route: 065
  164. LACTULOSE [Interacting]
     Active Substance: LACTULOSE
     Indication: Radioactive iodine therapy
     Dosage: 15 MILLILITER, QD
     Route: 065
  165. LACTULOSE [Interacting]
     Active Substance: LACTULOSE
     Indication: Constipation
     Dosage: 2 DOSAGE FORM, QD
     Route: 065
  166. LACTULOSE [Interacting]
     Active Substance: LACTULOSE
     Dosage: 15 MILLIGRAM, QD
     Route: 048
  167. LACTULOSE [Interacting]
     Active Substance: LACTULOSE
     Dosage: 15 MILLILITER
     Route: 048
  168. MAGNESIUM HYDROXIDE [Interacting]
     Active Substance: MAGNESIUM HYDROXIDE
     Indication: Constipation
     Dosage: 622 MILLIGRAM, QD
     Route: 065
  169. MAGNESIUM HYDROXIDE [Interacting]
     Active Substance: MAGNESIUM HYDROXIDE
     Dosage: 622 MILLIGRAM
     Route: 065
  170. MAGNESIUM HYDROXIDE [Interacting]
     Active Substance: MAGNESIUM HYDROXIDE
     Dosage: UNK
     Route: 065
  171. MAGNESIUM HYDROXIDE [Interacting]
     Active Substance: MAGNESIUM HYDROXIDE
     Dosage: 620 MILLIGRAM
     Route: 065
  172. MAGNESIUM HYDROXIDE [Interacting]
     Active Substance: MAGNESIUM HYDROXIDE
     Dosage: 1240 MILLIGRAM, QD
     Route: 065
  173. MAGNESIUM HYDROXIDE [Interacting]
     Active Substance: MAGNESIUM HYDROXIDE
     Dosage: 2 DOSAGE FORM, BID
     Route: 065
  174. MAGNESIUM HYDROXIDE [Interacting]
     Active Substance: MAGNESIUM HYDROXIDE
     Dosage: 40 DOSAGE FORM, QD
     Route: 065
  175. MAGNESIUM HYDROXIDE [Interacting]
     Active Substance: MAGNESIUM HYDROXIDE
     Dosage: UNK UNK, QD
     Route: 065
  176. MAGNESIUM HYDROXIDE [Interacting]
     Active Substance: MAGNESIUM HYDROXIDE
     Dosage: 2488 MILLIGRAM, BID
     Route: 065
  177. MORPHINE SULFATE [Interacting]
     Active Substance: MORPHINE SULFATE
     Indication: Pain
     Dosage: 10 MILLIGRAM, QD
     Route: 065
  178. MORPHINE SULFATE [Interacting]
     Active Substance: MORPHINE SULFATE
     Indication: Fibromyalgia
     Dosage: UNK
     Route: 065
  179. MORPHINE SULFATE [Interacting]
     Active Substance: MORPHINE SULFATE
     Indication: Chest pain
     Dosage: 2 DOSAGE FORM, QD
     Route: 065
  180. MORPHINE SULFATE [Interacting]
     Active Substance: MORPHINE SULFATE
     Dosage: 1 DOSAGE FORM, QD
     Route: 065
  181. MORPHINE SULFATE [Interacting]
     Active Substance: MORPHINE SULFATE
     Dosage: 100 MILLIGRAM, QD
     Route: 065
  182. MORPHINE SULFATE [Interacting]
     Active Substance: MORPHINE SULFATE
     Dosage: 10 MILLIGRAM
     Route: 065
  183. PERSANTINE [Interacting]
     Active Substance: DIPYRIDAMOLE
     Indication: Cerebrovascular accident
     Dosage: 1 DOSAGE FORM, BID
     Route: 065
  184. PERSANTINE [Interacting]
     Active Substance: DIPYRIDAMOLE
     Dosage: 0.5 DOSAGE FORM
     Route: 065
  185. PERSANTINE [Interacting]
     Active Substance: DIPYRIDAMOLE
     Dosage: 1 MILLIGRAM
     Route: 065
  186. PERSANTINE [Interacting]
     Active Substance: DIPYRIDAMOLE
     Dosage: 1 DOSAGE FORM
     Route: 065
  187. PERSANTINE [Interacting]
     Active Substance: DIPYRIDAMOLE
     Dosage: UNK
     Route: 048
  188. PERSANTINE [Interacting]
     Active Substance: DIPYRIDAMOLE
     Dosage: 2 DOSAGE FORM, BID
     Route: 048
  189. PERSANTINE [Interacting]
     Active Substance: DIPYRIDAMOLE
     Dosage: UNK UNK, BID
     Route: 065
  190. PERSANTINE [Interacting]
     Active Substance: DIPYRIDAMOLE
     Dosage: 380 MILLIGRAM, QD
     Route: 065
  191. PERSANTINE [Interacting]
     Active Substance: DIPYRIDAMOLE
     Dosage: 400 MILLIGRAM, QD
     Route: 065
  192. PERSANTINE [Interacting]
     Active Substance: DIPYRIDAMOLE
     Dosage: 2 DOSAGE FORM, QD
     Route: 065
  193. PERSANTINE [Interacting]
     Active Substance: DIPYRIDAMOLE
     Dosage: 25 MILLIGRAM
     Route: 065
  194. PICOLAX (ANHYDROUS CITRIC ACID\MAGNESIUM OXIDE\SODIUM PICOSULFATE) [Interacting]
     Active Substance: ANHYDROUS CITRIC ACID\MAGNESIUM OXIDE\SODIUM PICOSULFATE
     Indication: Constipation
     Dosage: 2 DOSAGE FORM, QD
     Route: 065
  195. POLYSORBATE 85 [Interacting]
     Active Substance: POLYSORBATE 85
     Indication: Insomnia
     Dosage: UNK
     Route: 065
  196. POTASSIUM SORBATE [Interacting]
     Active Substance: POTASSIUM SORBATE
     Indication: Product used for unknown indication
     Dosage: UNK
     Route: 065
  197. TIOTROPIUM BROMIDE MONOHYDRATE [Interacting]
     Active Substance: TIOTROPIUM BROMIDE MONOHYDRATE
     Indication: Chronic obstructive pulmonary disease
     Dosage: 18 MICROGRAM, QD
     Route: 065
  198. TIOTROPIUM BROMIDE MONOHYDRATE [Interacting]
     Active Substance: TIOTROPIUM BROMIDE MONOHYDRATE
     Indication: Asthma
     Dosage: 1 DOSAGE FORM, QD
     Route: 065
  199. TIOTROPIUM BROMIDE MONOHYDRATE [Interacting]
     Active Substance: TIOTROPIUM BROMIDE MONOHYDRATE
     Dosage: 18 MICROGRAM
     Route: 065
  200. TIOTROPIUM BROMIDE MONOHYDRATE [Interacting]
     Active Substance: TIOTROPIUM BROMIDE MONOHYDRATE
     Dosage: UNK, QD
     Route: 065
  201. CRANBERRY [Interacting]
     Active Substance: CRANBERRY
     Indication: Bladder disorder
     Dosage: 500 MILLIGRAM
     Route: 065
  202. CRANBERRY [Interacting]
     Active Substance: CRANBERRY
     Dosage: UNK
     Route: 065
  203. CRANBERRY [Interacting]
     Active Substance: CRANBERRY
     Dosage: 500 MILLIGRAM, TID
     Route: 065
  204. CRANBERRY [Interacting]
     Active Substance: CRANBERRY
     Dosage: 1500 MILLIGRAM
     Route: 065
  205. CRANBERRY [Interacting]
     Active Substance: CRANBERRY
     Dosage: 1500 MILLIGRAM, QD
     Route: 065
  206. CRANBERRY [Interacting]
     Active Substance: CRANBERRY
     Dosage: 4500 MILLIGRAM, QD
     Route: 065
  207. CRANBERRY [Interacting]
     Active Substance: CRANBERRY
     Dosage: 500 MILLIGRAM, QD
     Route: 065
  208. CRANBERRY [Interacting]
     Active Substance: CRANBERRY
     Dosage: UNK, QD
     Route: 065
  209. ZINC SALICYLATE [Interacting]
     Active Substance: ZINC SALICYLATE
     Indication: Product used for unknown indication
     Dosage: UNK
     Route: 065
  210. ACETAMINOPHEN [Interacting]
     Active Substance: ACETAMINOPHEN
     Indication: Radioactive iodine therapy
     Dosage: 50 MILLIGRAM, QD
     Route: 065
  211. ACETAMINOPHEN [Interacting]
     Active Substance: ACETAMINOPHEN
     Indication: Pain
     Dosage: 650 MILLIGRAM, QD
     Route: 065
  212. ACETAMINOPHEN [Interacting]
     Active Substance: ACETAMINOPHEN
     Indication: Fibromyalgia
     Dosage: 650 MILLIGRAM, QID
     Route: 065
  213. ACETAMINOPHEN [Interacting]
     Active Substance: ACETAMINOPHEN
     Indication: Angina pectoris
     Dosage: 650 MILLIGRAM
     Route: 065
  214. ACETAMINOPHEN AND CODEINE [Interacting]
     Active Substance: ACETAMINOPHEN\CODEINE PHOSPHATE
     Indication: Pain
     Dosage: UNK
     Route: 065
  215. AMBROXOL HYDROCHLORIDE\CLENBUTEROL [Interacting]
     Active Substance: AMBROXOL HYDROCHLORIDE\CLENBUTEROL
     Indication: Product used for unknown indication
     Dosage: UNK
     Route: 065
  216. ASCORBIC ACID\CRANBERRY [Interacting]
     Active Substance: ASCORBIC ACID\CRANBERRY
     Indication: Bladder ablation
     Dosage: 500 MILLIGRAM
     Route: 065
  217. ASCORBIC ACID\CRANBERRY [Interacting]
     Active Substance: ASCORBIC ACID\CRANBERRY
     Dosage: 500 MILLIGRAM, QD
     Route: 065
  218. ASCORBIC ACID\CRANBERRY [Interacting]
     Active Substance: ASCORBIC ACID\CRANBERRY
     Dosage: UNK
     Route: 065
  219. CAFFEINE [Interacting]
     Active Substance: CAFFEINE
     Indication: Product used for unknown indication
     Dosage: UNK
     Route: 065
  220. CARBAMAZEPINE [Interacting]
     Active Substance: CARBAMAZEPINE
     Indication: Seizure prophylaxis
     Dosage: 800 MILLIGRAM, BID
     Route: 065
  221. CARBAMAZEPINE [Interacting]
     Active Substance: CARBAMAZEPINE
     Indication: Seizure
     Dosage: 200 MILLIGRAM
     Route: 065
  222. CARBAMAZEPINE [Interacting]
     Active Substance: CARBAMAZEPINE
     Indication: Fibromyalgia
     Dosage: 10 MILLIGRAM
     Route: 065
  223. CARBAMAZEPINE [Interacting]
     Active Substance: CARBAMAZEPINE
     Indication: Bladder disorder
     Dosage: 1 DOSAGE FORM, BID
     Route: 065
  224. CARBAMAZEPINE [Interacting]
     Active Substance: CARBAMAZEPINE
     Dosage: 400 MILLIGRAM, BID
     Route: 065
  225. CARBAMAZEPINE [Interacting]
     Active Substance: CARBAMAZEPINE
     Dosage: 1 DOSAGE FORM, QD
     Route: 065
  226. CARBAMAZEPINE [Interacting]
     Active Substance: CARBAMAZEPINE
     Dosage: 2 DOSAGE FORM, QD
     Route: 065
  227. CARBAMAZEPINE [Interacting]
     Active Substance: CARBAMAZEPINE
     Dosage: 200 MILLIGRAM, QD
     Route: 065
  228. CARBAMAZEPINE [Interacting]
     Active Substance: CARBAMAZEPINE
     Dosage: 2000 MILLIGRAM
     Route: 065
  229. CARBAMAZEPINE [Interacting]
     Active Substance: CARBAMAZEPINE
     Dosage: 1000 MILLIGRAM
     Route: 065
  230. CHONDROITIN SULFATE (BOVINE)\GLUCOSAMINE SULFATE [Interacting]
     Active Substance: CHONDROITIN SULFATE (BOVINE)\GLUCOSAMINE SULFATE
     Indication: Product used for unknown indication
     Dosage: UNK
     Route: 065
  231. CITRIC ACID MONOHYDRATE\MAGNESIUM CARBONATE\SODIUM PICOSULFATE [Interacting]
     Active Substance: CITRIC ACID MONOHYDRATE\MAGNESIUM CARBONATE\SODIUM PICOSULFATE
     Indication: Constipation
     Dosage: 2 DOSAGE FORM, QD
     Route: 065
  232. DROTAVERINE [Interacting]
     Active Substance: DROTAVERINE
     Indication: Product used for unknown indication
     Dosage: UNK
     Route: 065
  233. FUROSEMIDE [Interacting]
     Active Substance: FUROSEMIDE
     Indication: Oedema
     Dosage: 40 MILLIGRAM, QD
     Route: 061
  234. FUROSEMIDE [Interacting]
     Active Substance: FUROSEMIDE
     Indication: Coronary artery disease
  235. FUROSEMIDE [Interacting]
     Active Substance: FUROSEMIDE
     Indication: Chest pain
  236. GALANTAMINE HYDROBROMIDE [Interacting]
     Active Substance: GALANTAMINE HYDROBROMIDE
     Indication: Dementia
     Dosage: 16 MILLIGRAM
     Route: 065
  237. GALANTAMINE HYDROBROMIDE [Interacting]
     Active Substance: GALANTAMINE HYDROBROMIDE
     Dosage: 16 MILLIGRAM, QD
     Route: 065
  238. NITROGLYCERIN [Interacting]
     Active Substance: NITROGLYCERIN
     Indication: Hypertension
     Dosage: 0.6 MILLIGRAM
     Route: 048
  239. NITROGLYCERIN [Interacting]
     Active Substance: NITROGLYCERIN
     Indication: Coronary artery disease
     Dosage: 40 MILLIGRAM, QD
     Route: 065
  240. NITROGLYCERIN [Interacting]
     Active Substance: NITROGLYCERIN
     Indication: Chest pain
     Dosage: 0.4 MILLIGRAM, QD
     Route: 061
  241. NITROGLYCERIN [Interacting]
     Active Substance: NITROGLYCERIN
     Indication: Angina pectoris
     Dosage: 0.4 MILLIGRAM
     Route: 061
  242. NITROGLYCERIN [Interacting]
     Active Substance: NITROGLYCERIN
     Dosage: 0.6 MILLIGRAM, QD
     Route: 061
  243. ALBUTEROL [Interacting]
     Active Substance: ALBUTEROL
     Indication: Hypertension
     Dosage: 400 MILLIGRAM
     Route: 065
  244. ALBUTEROL [Interacting]
     Active Substance: ALBUTEROL
     Indication: Coronary artery disease
     Dosage: UNK, QD
     Route: 065
  245. ALBUTEROL [Interacting]
     Active Substance: ALBUTEROL
     Indication: Chronic obstructive pulmonary disease
     Dosage: 400 MILLIGRAM, QD
     Route: 065
  246. ALBUTEROL [Interacting]
     Active Substance: ALBUTEROL
     Indication: Chest pain
     Dosage: UNK, TID
     Route: 065
  247. ALBUTEROL [Interacting]
     Active Substance: ALBUTEROL
     Indication: Angina pectoris
     Dosage: UNK, QID
     Route: 065
  248. ALBUTEROL [Interacting]
     Active Substance: ALBUTEROL
     Dosage: 800 MILLIGRAM
     Route: 065
  249. ALBUTEROL [Interacting]
     Active Substance: ALBUTEROL
     Dosage: 800 MILLIGRAM, QD
     Route: 065
  250. ALBUTEROL [Interacting]
     Active Substance: ALBUTEROL
     Dosage: UNK
     Route: 065
  251. ALBUTEROL [Interacting]
     Active Substance: ALBUTEROL
     Dosage: 100 MILLIGRAM, QD
     Route: 065
  252. SALICYLAMIDE [Interacting]
     Active Substance: SALICYLAMIDE
     Indication: Pain
     Dosage: UNK
     Route: 065
  253. SENNOSIDES [Interacting]
     Active Substance: SENNOSIDES
     Indication: Pain
     Dosage: UNK
     Route: 065
  254. CALCIUM ASCORBATE [Concomitant]
     Active Substance: CALCIUM ASCORBATE
     Indication: Product used for unknown indication
     Dosage: UNK
     Route: 065
  255. VITAMIN C [Concomitant]
     Active Substance: ASCORBIC ACID
     Indication: Bladder ablation
     Dosage: UNK
     Route: 065
  256. VITAMIN C [Concomitant]
     Active Substance: ASCORBIC ACID
     Dosage: 500 MILLIGRAM
     Route: 065
  257. VITAMIN C [Concomitant]
     Active Substance: ASCORBIC ACID
     Dosage: 500 MILLIGRAM, QD
     Route: 065
  258. VITAMIN C [Concomitant]
     Active Substance: ASCORBIC ACID
     Dosage: UNK, QD
     Route: 065
  259. HERBALS\PLANTAGO OVATA LEAF [Concomitant]
     Active Substance: HERBALS\PLANTAGO OVATA LEAF
     Indication: Constipation
     Dosage: UNK
     Route: 065

REACTIONS (23)
  - Balance disorder [Recovered/Resolved]
  - Toxicity to various agents [Recovered/Resolved]
  - Product use in unapproved indication [Recovered/Resolved]
  - Off label use [Recovered/Resolved]
  - Mobility decreased [Recovered/Resolved]
  - Creatinine renal clearance decreased [Recovered/Resolved]
  - Fall [Recovered/Resolved]
  - Sedation complication [Recovered/Resolved]
  - Depressed level of consciousness [Recovered/Resolved]
  - Cognitive disorder [Recovered/Resolved]
  - Blood calcium decreased [Recovered/Resolved]
  - Pain [Recovered/Resolved]
  - Sedation [Recovered/Resolved]
  - Dyspnoea [Recovered/Resolved]
  - Overdose [Recovered/Resolved]
  - Multiple drug therapy [Recovered/Resolved]
  - Drug abuse [Recovered/Resolved]
  - Creatinine renal clearance increased [Recovered/Resolved]
  - Drug interaction [Recovered/Resolved]
  - Renal function test abnormal [Recovered/Resolved]
  - Orthostatic hypotension [Recovered/Resolved]
  - Constipation [Recovered/Resolved]
  - Hypotension [Recovered/Resolved]
